FAERS Safety Report 15574738 (Version 2)
Quarter: 2018Q4

REPORT INFORMATION
  Report Type: Report from Study
  Country: DE (occurrence: DE)
  Receive Date: 20181101
  Receipt Date: 20181115
  Transmission Date: 20190205
  Serious: Yes (Other)
  Sender: FDA-Public Use
  Company Number: DE-BRISTOL-MYERS SQUIBB COMPANY-BMS-2018-100626

PATIENT
  Age: 49 Year
  Sex: Female

DRUGS (2)
  1. IPILIMUMAB [Suspect]
     Active Substance: IPILIMUMAB
     Indication: MALIGNANT MELANOMA
     Dosage: 3.0 MG/KG, UNK
     Route: 065
     Dates: start: 20181005
  2. NIVOLUMAB [Suspect]
     Active Substance: NIVOLUMAB
     Indication: MALIGNANT MELANOMA
     Dosage: 1.0 MG/KG, UNK
     Route: 065
     Dates: start: 20181005

REACTIONS (1)
  - Autoimmune colitis [Unknown]

NARRATIVE: CASE EVENT DATE: 20181023
